FAERS Safety Report 7345641-7 (Version None)
Quarter: 2011Q1

REPORT INFORMATION
  Report Type: 
  Country: None (occurrence: None)
  Receive Date: 20110310
  Receipt Date: 20110303
  Transmission Date: 20110831
  Serious: Yes (Other)
  Sender: FDA-Public Use
  Company Number: A0917393A

PATIENT
  Sex: Male
  Weight: 35 kg

DRUGS (3)
  1. AMOXIL [Suspect]
     Indication: TONSILLITIS
     Dosage: 720MG TWICE PER DAY
     Route: 065
     Dates: start: 20110221, end: 20110302
  2. PRELONE [Concomitant]
     Dosage: 7ML THREE TIMES PER DAY
     Dates: start: 20110222, end: 20110227
  3. IBUPROFEN [Concomitant]
     Indication: PAIN
     Dosage: 30DROP AS REQUIRED
     Route: 065
     Dates: start: 20110222, end: 20110223

REACTIONS (7)
  - ASTHENIA [None]
  - FEAR [None]
  - COORDINATION ABNORMAL [None]
  - CRYING [None]
  - DYSKINESIA [None]
  - ANOXIA [None]
  - DELIRIUM [None]
